FAERS Safety Report 6195118-X (Version None)
Quarter: 2009Q2

REPORT INFORMATION
  Report Type: 
  Country: None (occurrence: None)
  Receive Date: 20090519
  Receipt Date: 20090504
  Transmission Date: 20091009
  Serious: Yes (Other)
  Sender: FDA-Public Use
  Company Number: US-ROCHE-631284

PATIENT
  Sex: Female
  Weight: 71.7 kg

DRUGS (2)
  1. PEGASYS [Suspect]
     Dosage: FORM: PRE FILLED SYRINGE
     Route: 065
     Dates: start: 20080906
  2. RIBAVIRIN [Suspect]
     Route: 065
     Dates: start: 20080906

REACTIONS (5)
  - MOUTH ULCERATION [None]
  - OROPHARYNGEAL BLISTERING [None]
  - PRESYNCOPE [None]
  - STOMATITIS [None]
  - TONGUE DISORDER [None]
